FAERS Safety Report 9893699 (Version 1)
Quarter: 2014Q1

REPORT INFORMATION
  Report Type: Spontaneous
  Country: US (occurrence: US)
  Receive Date: 20140213
  Receipt Date: 20140213
  Transmission Date: 20141002
  Serious: No
  Sender: FDA-Public Use
  Company Number: US-B.I. PHARMACEUTICALS,INC./RIDGEFIELD-2014-BI-06232BP

PATIENT
  Age: 71 Year
  Sex: Female
  Weight: 73 kg

DRUGS (7)
  1. PRADAXA [Suspect]
     Indication: ATRIAL FIBRILLATION
     Dosage: 300 MG
     Route: 048
     Dates: start: 20140115
  2. TOPROL XL [Concomitant]
     Indication: HYPERTENSION
     Dosage: 25 MG
     Route: 048
  3. BENAZEPRIL [Concomitant]
     Indication: HYPERTENSION
     Dosage: 20 MG
     Route: 048
  4. FLUOXETINE HCL [Concomitant]
     Dosage: 20 MG
     Route: 048
  5. RYTHMOL [Concomitant]
     Indication: HEART RATE IRREGULAR
     Dosage: 300 MG
     Route: 048
  6. OCUVITE LUTEIN [Concomitant]
  7. FLUTICASONE [Concomitant]
     Indication: HYPERSENSITIVITY
     Dosage: FORMULATION: NASAL SPRAY
     Route: 045

REACTIONS (2)
  - Cataract [Recovered/Resolved]
  - Pruritus [Recovered/Resolved]
